FAERS Safety Report 4412993-7 (Version None)
Quarter: 2004Q3

REPORT INFORMATION
  Report Type: 
  Country: None (occurrence: None)
  Receive Date: 20040802
  Receipt Date: 20040329
  Transmission Date: 20050211
  Serious: No
  Sender: FDA-Public Use
  Company Number: US-GLAXOSMITHKLINE-A0504907A

PATIENT
  Age: 7 Week
  Sex: Female

DRUGS (1)
  1. ZANTAC [Suspect]
     Dosage: .75TSP TWICE PER DAY
     Route: 048
     Dates: start: 20040301

REACTIONS (3)
  - DRUG INEFFECTIVE [None]
  - VOMITING [None]
  - WEIGHT DECREASED [None]
